FAERS Safety Report 18590733 (Version 1)
Quarter: 2020Q4

REPORT INFORMATION
  Report Type: Spontaneous
  Country: US (occurrence: US)
  Receive Date: 20201208
  Receipt Date: 20201208
  Transmission Date: 20210114
  Serious: Yes (Hospitalization)
  Sender: FDA-Public Use
  Company Number: None

PATIENT
  Age: 77 Year
  Sex: Male

DRUGS (9)
  1. PREDNISONE TAB 2.5MG [Concomitant]
     Dates: start: 20201118
  2. POT CHLORIDE TAB 10MEQ ER [Concomitant]
     Dates: start: 20201020
  3. AMLODIPINE TAB 5MG [Concomitant]
     Dates: start: 20201113
  4. ERLEADA [Suspect]
     Active Substance: APALUTAMIDE
     Indication: NEOPLASM MALIGNANT
     Route: 048
     Dates: start: 20200611
  5. LOSARTAN POT TAB 25MG [Concomitant]
  6. MYCOPHENOLAT TAB 500MG [Concomitant]
     Active Substance: MYCOPHENOLATE MOFETIL
  7. LOSARTAN POT TAB TAB 100MG [Concomitant]
     Dates: start: 20201107
  8. LOPERAMIDE CAP 2MG [Concomitant]
     Dates: start: 20201113
  9. CHLORTHALID TAB 50MG [Concomitant]
     Dates: start: 20201011

REACTIONS (5)
  - Weight decreased [None]
  - Diarrhoea [None]
  - Gait inability [None]
  - Blood pressure decreased [None]
  - Dehydration [None]

NARRATIVE: CASE EVENT DATE: 20200701
